FAERS Safety Report 10202934 (Version 1)
Quarter: 2014Q2

REPORT INFORMATION
  Report Type: Spontaneous
  Country: US (occurrence: US)
  Receive Date: 20140528
  Receipt Date: 20140528
  Transmission Date: 20141212
  Serious: Yes (Other)
  Sender: FDA-Public Use
  Company Number: US-FRI-1000067584

PATIENT
  Sex: Female

DRUGS (1)
  1. BYSTOLIC [Suspect]
     Dates: start: 201311

REACTIONS (2)
  - Renal impairment [Not Recovered/Not Resolved]
  - Blood urea increased [Not Recovered/Not Resolved]
